FAERS Safety Report 19895204 (Version 1)
Quarter: 2021Q3

REPORT INFORMATION
  Report Type: Spontaneous
  Country: US (occurrence: US)
  Receive Date: 20210929
  Receipt Date: 20210929
  Transmission Date: 20211014
  Serious: Yes (Other)
  Sender: FDA-Public Use
  Company Number: US-DRREDDYS-SPO/USA/21/0141893

PATIENT
  Age: 71 Year
  Sex: Male

DRUGS (2)
  1. CISPLATIN. [Suspect]
     Active Substance: CISPLATIN
     Indication: LUNG SQUAMOUS CELL CARCINOMA STAGE III
  2. DOCETAXEL. [Suspect]
     Active Substance: DOCETAXEL
     Indication: LUNG SQUAMOUS CELL CARCINOMA STAGE III

REACTIONS (5)
  - Vasogenic cerebral oedema [Recovered/Resolved]
  - Pneumonia aspiration [Recovered/Resolved]
  - Generalised tonic-clonic seizure [Recovered/Resolved]
  - Leukoencephalopathy [Recovered/Resolved]
  - Orthostatic hypotension [Recovered/Resolved]
